FAERS Safety Report 4995659-4 (Version None)
Quarter: 2006Q2

REPORT INFORMATION
  Report Type: 
  Country: None (occurrence: None)
  Receive Date: 20060504
  Receipt Date: 20060428
  Transmission Date: 20061013
  Serious: Yes (Hospitalization, Other)
  Sender: FDA-Public Use
  Company Number: 2006-03-2041

PATIENT
  Age: 26 Year
  Sex: Female
  Weight: 53.5244 kg

DRUGS (3)
  1. PEG-INTRON [Suspect]
     Indication: HEPATITIS C
     Dosage: 80 MCG QWK
     Dates: start: 20060113, end: 20060322
  2. REBETOL [Suspect]
     Indication: HEPATITIS C
     Dosage: 800 MG QD ORAL
     Route: 048
     Dates: start: 20060113, end: 20060322
  3. PROZAC [Concomitant]

REACTIONS (11)
  - CONVERSION DISORDER [None]
  - DEPRESSED LEVEL OF CONSCIOUSNESS [None]
  - DIFFICULTY IN WALKING [None]
  - DYSKINESIA [None]
  - DYSPHEMIA [None]
  - MUSCLE TWITCHING [None]
  - MUSCULAR WEAKNESS [None]
  - SOMATOFORM DISORDER [None]
  - SPEECH DISORDER [None]
  - THINKING ABNORMAL [None]
  - TREMOR [None]
